FAERS Safety Report 20254805 (Version 1)
Quarter: 2021Q4

REPORT INFORMATION
  Report Type: Report from Study
  Country: BR (occurrence: BR)
  Receive Date: 20211230
  Receipt Date: 20211230
  Transmission Date: 20220304
  Serious: Yes (Other)
  Sender: FDA-Public Use
  Company Number: BR-NOVARTISPH-NVSC2021BR295815

PATIENT
  Sex: Male

DRUGS (6)
  1. LOSARTAN [Suspect]
     Active Substance: LOSARTAN
     Indication: Hypertension
     Dosage: UNK
     Route: 065
     Dates: start: 2012
  2. COSENTYX [Concomitant]
     Active Substance: SECUKINUMAB
     Indication: Ankylosing spondylitis
     Dosage: UNK
     Route: 065
     Dates: start: 20210827
  3. HUMIRA [Concomitant]
     Active Substance: ADALIMUMAB
     Indication: Product used for unknown indication
     Dosage: UNK
     Route: 065
     Dates: end: 2021
  4. SULFASALAZINE [Concomitant]
     Active Substance: SULFASALAZINE
     Indication: Product used for unknown indication
     Dosage: UNK
     Route: 065
  5. ACETAMINOPHEN [Concomitant]
     Active Substance: ACETAMINOPHEN
     Indication: Product used for unknown indication
     Dosage: 750 MG
     Route: 065
  6. HYDROCHLOROTHIAZIDE [Concomitant]
     Active Substance: HYDROCHLOROTHIAZIDE
     Indication: Hypertension
     Dosage: UNK
     Route: 065

REACTIONS (16)
  - Uveitis [Unknown]
  - Hand deformity [Unknown]
  - Blood pressure increased [Unknown]
  - Finger deformity [Unknown]
  - Peripheral swelling [Recovered/Resolved]
  - Erythema [Unknown]
  - Feeling hot [Unknown]
  - Muscle strain [Unknown]
  - Feeling abnormal [Unknown]
  - Ocular hyperaemia [Recovered/Resolved]
  - Conjunctivitis [Unknown]
  - Eye irritation [Recovered/Resolved]
  - Anxiety [Unknown]
  - Unevaluable event [Unknown]
  - Pain [Recovering/Resolving]
  - Fatigue [Recovering/Resolving]

NARRATIVE: CASE EVENT DATE: 20160101
